FAERS Safety Report 20308699 (Version 1)
Quarter: 2022Q1

REPORT INFORMATION
  Report Type: Spontaneous
  Country: CA (occurrence: CA)
  Receive Date: 20220107
  Receipt Date: 20220107
  Transmission Date: 20220423
  Serious: Yes (Other)
  Sender: FDA-Public Use
  Company Number: None

PATIENT
  Age: 60 Year
  Sex: Female

DRUGS (5)
  1. METHOTREXATE [Suspect]
     Active Substance: METHOTREXATE
     Indication: Product used for unknown indication
     Route: 058
  2. AZATHIOPRINE [Concomitant]
     Active Substance: AZATHIOPRINE
  3. HYDROXYCHLOROQUINE SULFATE [Concomitant]
     Active Substance: HYDROXYCHLOROQUINE SULFATE
     Dosage: EVERY 1 DAYS
     Route: 048
  4. SULFASALAZINE [Concomitant]
     Active Substance: SULFASALAZINE
     Dosage: 2 EVERY 1 DAYS
     Route: 048
  5. XELJANZ [Concomitant]
     Active Substance: TOFACITINIB CITRATE
     Indication: Rheumatoid arthritis
     Dosage: 2 EVERY 1 DAYS
     Route: 048

REACTIONS (8)
  - Hepatic cirrhosis [Not Recovered/Not Resolved]
  - Drug intolerance [Unknown]
  - Nausea [Not Recovered/Not Resolved]
  - Pain [Not Recovered/Not Resolved]
  - Product use issue [Unknown]
  - Pyrexia [Not Recovered/Not Resolved]
  - Therapeutic product effect incomplete [Unknown]
  - Vomiting [Not Recovered/Not Resolved]
